FAERS Safety Report 8389841-6 (Version None)
Quarter: 2012Q2

REPORT INFORMATION
  Report Type: 
  Country: None (occurrence: None)
  Receive Date: 20120529
  Receipt Date: 20120522
  Transmission Date: 20120825
  Serious: Yes (Disabling, Other)
  Sender: FDA-Public Use
  Company Number: US-BAYER-2012-045283

PATIENT
  Age: 39 Year
  Sex: Female

DRUGS (1)
  1. MIRENA [Suspect]
     Dosage: 20 MCG/24HR, CONT
     Route: 015
     Dates: start: 20110418, end: 20110418

REACTIONS (4)
  - HYSTERECTOMY [None]
  - DEVICE EXPULSION [None]
  - UTERINE HAEMORRHAGE [None]
  - COMPLICATION OF DEVICE INSERTION [None]
